FAERS Safety Report 7095151-X (Version None)
Quarter: 2010Q4

REPORT INFORMATION
  Report Type: 
  Country: None (occurrence: None)
  Receive Date: 20101109
  Receipt Date: 20101109
  Transmission Date: 20110411
  Serious: No
  Sender: FDA-Public Use
  Company Number: None

PATIENT
  Sex: Female
  Weight: 63.5036 kg

DRUGS (1)
  1. KANKA BLISTEX [Suspect]
     Indication: ORAL PAIN
     Dosage: THIN LAYER ONCE CUTANEOUS
     Route: 003
     Dates: start: 20101104, end: 20101104

REACTIONS (2)
  - HYPERSENSITIVITY [None]
  - LIP SWELLING [None]
